FAERS Safety Report 6649630-7 (Version None)
Quarter: 2010Q1

REPORT INFORMATION
  Report Type: 
  Country: None (occurrence: None)
  Receive Date: 20100324
  Receipt Date: 20090308
  Transmission Date: 20100710
  Serious: No
  Sender: FDA-Public Use
  Company Number: US-AMGEN-KDL337268

PATIENT
  Sex: Female

DRUGS (9)
  1. NEULASTA [Suspect]
     Indication: CHEMOTHERAPY
     Dates: start: 20080101
  2. RITUXIMAB [Concomitant]
  3. IFOSFAMIDE [Concomitant]
  4. CARBOPLATIN [Concomitant]
  5. ETOPOSIDE [Concomitant]
  6. CYCLOPHOSPHAMIDE [Concomitant]
     Dates: start: 20080101
  7. DOXORUBICIN HCL [Concomitant]
     Dates: start: 20080101
  8. ONCOVIN [Concomitant]
     Dates: start: 20080101
  9. PREDNISONE [Concomitant]
     Dates: start: 20080101

REACTIONS (1)
  - WHITE BLOOD CELL COUNT DECREASED [None]
